FAERS Safety Report 22105753 (Version 36)
Quarter: 2025Q4

REPORT INFORMATION
  Report Type: Report from Study
  Country: US (occurrence: US)
  Receive Date: 20230317
  Receipt Date: 20251127
  Transmission Date: 20260117
  Serious: Yes (Hospitalization, Other)
  Sender: TAKEDA
  Company Number: US-TAKEDA-2022TUS069565

PATIENT
  Age: 21 Year
  Sex: Female

DRUGS (9)
  1. LANADELUMAB [Suspect]
     Active Substance: LANADELUMAB
     Indication: Immune system disorder
     Dosage: 300 MILLIGRAM, Q2WEEKS
     Dates: start: 20220908
  2. LANADELUMAB [Suspect]
     Active Substance: LANADELUMAB
     Indication: Prophylaxis
     Dosage: 300 MILLIGRAM, Q2WEEKS
     Dates: start: 20220909
  3. LANADELUMAB [Suspect]
     Active Substance: LANADELUMAB
     Dosage: 300MG/2ML, Q2WEEKS
     Dates: start: 202209
  4. STERILE WATER [Concomitant]
     Active Substance: WATER
     Dosage: UNK
  5. EPINEPHRINE [Concomitant]
     Active Substance: EPINEPHRINE
     Dosage: UNK
  6. ICATIBANT ACETATE [Concomitant]
     Active Substance: ICATIBANT ACETATE
     Dosage: UNK
  7. RUCONEST [Concomitant]
     Active Substance: CONESTAT ALFA
     Dosage: UNK
  8. SODIUM CHLORIDE [Concomitant]
     Active Substance: SODIUM CHLORIDE
     Dosage: UNK
  9. FIRAZYR [Concomitant]
     Active Substance: ICATIBANT ACETATE
     Dosage: UNK

REACTIONS (20)
  - Limb injury [Unknown]
  - Chest injury [Unknown]
  - Hereditary angioedema [Recovered/Resolved]
  - Food allergy [Unknown]
  - Allergy to chemicals [Unknown]
  - Electric shock [Unknown]
  - Weight increased [Unknown]
  - Soft tissue disorder [Unknown]
  - Insurance issue [Unknown]
  - Visual impairment [Unknown]
  - Weight decreased [Unknown]
  - Product use issue [Unknown]
  - Product dose omission issue [Unknown]
  - Poor venous access [Unknown]
  - Injection site scar [Unknown]
  - Victim of crime [Unknown]
  - Eye injury [Unknown]
  - Infected bite [Unknown]
  - Stress [Unknown]
  - Injection site pain [Unknown]

NARRATIVE: CASE EVENT DATE: 20231101
